FAERS Safety Report 17440726 (Version 1)
Quarter: 2020Q1

REPORT INFORMATION
  Report Type: Spontaneous
  Country: CH (occurrence: CH)
  Receive Date: 20200220
  Receipt Date: 20200220
  Transmission Date: 20200409
  Serious: Yes (Hospitalization, Other)
  Sender: FDA-Public Use
  Company Number: CH-PFIZER INC-2020070852

PATIENT
  Age: 49 Year
  Sex: Female

DRUGS (28)
  1. FORTECORTIN [DEXAMETHASONE] [Concomitant]
     Active Substance: DEXAMETHASONE
     Dosage: 4 MG, 1X/DAY
     Route: 048
     Dates: start: 20200122, end: 20200126
  2. ONDANSETRON LABATEC [Concomitant]
     Active Substance: ONDANSETRON
     Dosage: 8 MG, 2X/DAY
     Route: 048
     Dates: start: 20200109, end: 20200115
  3. ZYLORIC [Suspect]
     Active Substance: ALLOPURINOL
     Dosage: 300 MG, 1X/DAY
     Route: 048
     Dates: start: 20200109, end: 20200115
  4. ACIDUM FOLICUM STREULI [Concomitant]
     Active Substance: FOLIC ACID
     Dosage: 5 MG, 1X/DAY
     Route: 048
     Dates: start: 20200114, end: 20200117
  5. EMEND [Concomitant]
     Active Substance: APREPITANT
     Dosage: 80 MG, UNK
     Route: 048
     Dates: start: 20200113, end: 20200114
  6. CLEXANE [Concomitant]
     Active Substance: ENOXAPARIN SODIUM
     Dosage: 40 MG, UNK
     Route: 058
     Dates: start: 20200126
  7. CEFEPIME [Suspect]
     Active Substance: CEFEPIME HYDROCHLORIDE
     Indication: PYREXIA
     Dosage: 2 G, 3X/DAY(EVERY 8 HOURS)
     Route: 042
     Dates: start: 20200117, end: 20200118
  8. FORTECORTIN [DEXAMETHASONE] [Concomitant]
     Active Substance: DEXAMETHASONE
     Indication: PLASMA CELL MYELOMA
     Dosage: 4 MG, 2X/DAY
     Route: 048
     Dates: start: 20200109, end: 20200113
  9. ONDANSETRON LABATEC [Concomitant]
     Active Substance: ONDANSETRON
     Dosage: 8 MG, UNK
     Route: 048
     Dates: start: 20200124, end: 20200128
  10. NEXIUM MUPS [ESOMEPRAZOLE MAGNESIUM] [Concomitant]
     Active Substance: ESOMEPRAZOLE MAGNESIUM
     Dosage: 40 MG, UNK
     Route: 048
     Dates: start: 20200125
  11. BACTRIM [Suspect]
     Active Substance: SULFAMETHOXAZOLE\TRIMETHOPRIM
     Dosage: 800MG/160MG 1X/DAY, 3X/WEEK
     Route: 048
     Dates: start: 20200109, end: 20200115
  12. BACTRIM [Suspect]
     Active Substance: SULFAMETHOXAZOLE\TRIMETHOPRIM
     Dosage: 800/160 MG, PER APPLICATION
     Route: 042
     Dates: start: 20200117, end: 20200117
  13. BACTRIM [Suspect]
     Active Substance: SULFAMETHOXAZOLE\TRIMETHOPRIM
     Dosage: 800/160 MG, PER APPLICATION
     Route: 042
     Dates: start: 20200120, end: 20200120
  14. ACIDUM FOLICUM STREULI [Concomitant]
     Active Substance: FOLIC ACID
     Dosage: 5 MG, UNK
     Route: 048
     Dates: start: 20200125
  15. EMEND [Concomitant]
     Active Substance: APREPITANT
     Dosage: 80 MG, UNK
     Route: 048
     Dates: start: 20200110, end: 20200111
  16. VALTREX [Concomitant]
     Active Substance: VALACYCLOVIR HYDROCHLORIDE
     Dosage: 500 MG, UNK
     Route: 048
     Dates: start: 20200125
  17. WELLVONE [Concomitant]
     Active Substance: ATOVAQUONE
     Dosage: 10 ML, DAILY
     Route: 048
     Dates: start: 20200124
  18. TREOSULFAN [Suspect]
     Active Substance: TREOSULFAN
     Indication: PLASMA CELL MYELOMA
     Dosage: 28 G, EVERY 24 H
     Route: 042
     Dates: start: 20200109, end: 20200111
  19. NOVALGIN (METAMIZOLE SODIUM) [Suspect]
     Active Substance: METAMIZOLE SODIUM
     Indication: PAIN
     Dosage: 0.5 G, AS NEEDED
     Route: 042
     Dates: start: 20200117, end: 20200122
  20. DIFLUCAN [Suspect]
     Active Substance: FLUCONAZOLE
     Dosage: 200 MG, SINGLE
     Route: 048
     Dates: start: 20200109, end: 20200109
  21. DIFLUCAN [Suspect]
     Active Substance: FLUCONAZOLE
     Dosage: 200 MG, SINGLE
     Route: 042
     Dates: start: 20200117, end: 20200117
  22. CEFEPIME [Suspect]
     Active Substance: CEFEPIME HYDROCHLORIDE
     Dosage: 1 G, 3X/DAY(EVERY 8 HOURS)
     Route: 042
     Dates: start: 20200118, end: 20200122
  23. METRONIDAZOLE BIOREN [Suspect]
     Active Substance: METRONIDAZOLE
     Indication: PYREXIA
     Dosage: 500 MG, 3X/DAY(EVERY 8 HOURS)
     Route: 042
     Dates: start: 20200117, end: 20200122
  24. CLEXANE [Concomitant]
     Active Substance: ENOXAPARIN SODIUM
     Dosage: 40 MG, DAILY (STRENGTH: 40MG/ 0.4ML)
     Route: 058
     Dates: start: 20200109, end: 20200119
  25. ALKERAN (MELPHALAN HYDROCHLORIDE) [Suspect]
     Active Substance: MELPHALAN HYDROCHLORIDE
     Indication: PLASMA CELL MYELOMA
     Dosage: 278 MG, SINGLE
     Route: 042
     Dates: start: 20200112, end: 20200112
  26. BACTRIM [Suspect]
     Active Substance: SULFAMETHOXAZOLE\TRIMETHOPRIM
     Dosage: 800/160 MG, PER APPLICATION
     Route: 042
     Dates: start: 20200122, end: 20200122
  27. VALTREX [Concomitant]
     Active Substance: VALACYCLOVIR HYDROCHLORIDE
     Dosage: 500 MG, 2X/DAY
     Route: 048
     Dates: start: 20200114, end: 20200117
  28. NEXIUM MUPS [ESOMEPRAZOLE MAGNESIUM] [Concomitant]
     Active Substance: ESOMEPRAZOLE MAGNESIUM
     Dosage: 40 MG, 1X/DAY(1-0-0-0)
     Route: 048
     Dates: start: 20200109, end: 20200117

REACTIONS (4)
  - Symmetrical drug-related intertriginous and flexural exanthema [Recovered/Resolved]
  - Febrile neutropenia [Recovered/Resolved]
  - Pancytopenia [Recovering/Resolving]
  - Neutropenic colitis [Recovering/Resolving]

NARRATIVE: CASE EVENT DATE: 202001
